FAERS Safety Report 14475041 (Version 1)
Quarter: 2018Q1

REPORT INFORMATION
  Report Type: Spontaneous
  Country: US (occurrence: US)
  Receive Date: 20180131
  Receipt Date: 20180131
  Transmission Date: 20180509
  Serious: Yes (Hospitalization)
  Sender: FDA-Public Use
  Company Number: None

PATIENT
  Age: 66 Year
  Sex: Female

DRUGS (15)
  1. CIPROFLOXACN [Concomitant]
     Active Substance: CIPROFLOXACIN
  2. CLONIDINE. [Concomitant]
     Active Substance: CLONIDINE
  3. MAGNESIUM [Concomitant]
     Active Substance: MAGNESIUM
  4. TRAMADOL. [Concomitant]
     Active Substance: TRAMADOL
  5. ELIQUIS [Concomitant]
     Active Substance: APIXABAN
  6. TIMOLOL. [Concomitant]
     Active Substance: TIMOLOL
  7. FLUTICASONE. [Concomitant]
     Active Substance: FLUTICASONE
  8. CYMBALTA [Concomitant]
     Active Substance: DULOXETINE HYDROCHLORIDE
  9. METOPROLOL. [Concomitant]
     Active Substance: METOPROLOL
  10. OMEPRAZOLE. [Concomitant]
     Active Substance: OMEPRAZOLE
  11. POTASSIUM [Concomitant]
     Active Substance: POTASSIUM
  12. LUMIGAN [Concomitant]
     Active Substance: BIMATOPROST
  13. LONSURF [Suspect]
     Active Substance: TIPIRACIL HYDROCHLORIDE\TRIFLURIDINE
     Indication: NEOPLASM MALIGNANT
     Route: 048
     Dates: start: 20171227
  14. LOMOTIL [Concomitant]
     Active Substance: ATROPINE SULFATE\DIPHENOXYLATE HYDROCHLORIDE
  15. PEPCID [Concomitant]
     Active Substance: FAMOTIDINE

REACTIONS (6)
  - Decreased appetite [None]
  - Diarrhoea [None]
  - Upper respiratory tract infection [None]
  - Cough [None]
  - Candida infection [None]
  - White blood cell count decreased [None]

NARRATIVE: CASE EVENT DATE: 20180118
